FAERS Safety Report 4655260-9 (Version None)
Quarter: 2005Q2

REPORT INFORMATION
  Report Type: 
  Country: None (occurrence: None)
  Receive Date: 20050506
  Receipt Date: 20050427
  Transmission Date: 20051028
  Serious: Yes (Hospitalization)
  Sender: FDA-Public Use
  Company Number: AU-JNJFOC-20050500696

PATIENT
  Sex: Male

DRUGS (3)
  1. TRAMADOL HCL [Suspect]
     Indication: BACK PAIN
     Route: 049
  2. NITRAZEPAM [Suspect]
     Indication: DRUG USE FOR UNKNOWN INDICATION
     Route: 049
  3. PARACETAMOL [Concomitant]
     Dosage: 1000MG 4 TIMES.
     Route: 049

REACTIONS (2)
  - CONFUSIONAL STATE [None]
  - FALL [None]
